FAERS Safety Report 6227343-3 (Version None)
Quarter: 2009Q2

REPORT INFORMATION
  Report Type: 
  Country: None (occurrence: None)
  Receive Date: 20090612
  Receipt Date: 20090603
  Transmission Date: 20091009
  Serious: Yes (Hospitalization)
  Sender: FDA-Public Use
  Company Number: JP-JNJFOC-20090600218

PATIENT
  Sex: Male
  Weight: 89 kg

DRUGS (12)
  1. REMICADE [Suspect]
     Dosage: 15TH DOSE
     Route: 042
  2. REMICADE [Suspect]
     Dosage: 14TH DOSE
     Route: 042
  3. REMICADE [Suspect]
     Indication: RHEUMATOID ARTHRITIS
     Dosage: 13 INFUSIONS ON UNSPECIFIED DATES
     Route: 042
  4. ZYLORIC [Concomitant]
     Route: 048
  5. METHOTREXATE [Concomitant]
     Indication: RHEUMATOID ARTHRITIS
     Route: 048
  6. FOLIAMIN [Concomitant]
     Route: 048
  7. PROGRAF [Concomitant]
     Route: 048
  8. BETAMETHASONE SODIUM PHOSPHATE [Concomitant]
  9. CHLORPHENIRAMINE MALEATE [Concomitant]
     Route: 048
  10. PREDONINE [Concomitant]
     Route: 048
  11. CELECOX [Concomitant]
     Route: 048
  12. GASTER D [Concomitant]
     Route: 048

REACTIONS (1)
  - HYPOKALAEMIA [None]
